FAERS Safety Report 5029140-3 (Version None)
Quarter: 2006Q2

REPORT INFORMATION
  Report Type: 
  Country: None (occurrence: None)
  Receive Date: 20060619
  Receipt Date: 20060517
  Transmission Date: 20061013
  Serious: Yes (Hospitalization)
  Sender: FDA-Public Use
  Company Number: AU-BRISTOL-MYERS SQUIBB COMPANY-13389721

PATIENT
  Age: 45 Year
  Sex: Male

DRUGS (9)
  1. CYCLOPHOSPHAMIDE [Suspect]
     Indication: CHRONIC LYMPHOCYTIC LEUKAEMIA
     Route: 042
     Dates: start: 20060421, end: 20060421
  2. FLUDARABINE [Suspect]
     Indication: CHRONIC LYMPHOCYTIC LEUKAEMIA
     Route: 042
     Dates: start: 20060421, end: 20060421
  3. METOCLOPRAMIDE [Concomitant]
     Dates: start: 20060125
  4. DOLASETRON [Concomitant]
     Dates: start: 20060125, end: 20060130
  5. DOLASETRON [Concomitant]
     Dates: start: 20060222, end: 20060224
  6. LORAZEPAM [Concomitant]
     Dates: start: 20060127, end: 20060127
  7. MAXOLON [Concomitant]
     Dates: start: 20060125, end: 20060127
  8. CYCLIZINE [Concomitant]
     Dates: start: 20060222, end: 20060425
  9. ACETAMINOPHEN W/ CODEINE [Concomitant]
     Dates: start: 20060420

REACTIONS (1)
  - HEADACHE [None]
